FAERS Safety Report 19770352 (Version 1)
Quarter: 2021Q3

REPORT INFORMATION
  Report Type: Spontaneous
  Country: US (occurrence: US)
  Receive Date: 20210901
  Receipt Date: 20210901
  Transmission Date: 20211014
  Serious: No
  Sender: FDA-Public Use
  Company Number: US-DRREDDYS-SPO/USA/21/0139572

PATIENT
  Age: 44 Year
  Sex: Female

DRUGS (1)
  1. ZENATANE [Suspect]
     Active Substance: ISOTRETINOIN
     Indication: PRODUCT USED FOR UNKNOWN INDICATION
     Dosage: RMA ISSUE DATE: 3/AUGUST/2021 9:08:39 AM, 30/JUNE/2021 10:22:48 AM
     Dates: start: 20210630, end: 20210827

REACTIONS (1)
  - Therapy cessation [Unknown]
